FAERS Safety Report 20596629 (Version 1)
Quarter: 2022Q1

REPORT INFORMATION
  Report Type: Report from Study
  Country: US (occurrence: US)
  Receive Date: 20220315
  Receipt Date: 20220315
  Transmission Date: 20220423
  Serious: Yes (Other)
  Sender: FDA-Public Use
  Company Number: US-JAZZ-2022-US-007741

PATIENT
  Sex: Female

DRUGS (11)
  1. XYREM [Suspect]
     Active Substance: SODIUM OXYBATE
     Indication: Narcolepsy
     Dosage: 3GM BID AT BEDTIME
     Route: 048
     Dates: start: 201101, end: 201103
  2. XYREM [Suspect]
     Active Substance: SODIUM OXYBATE
     Indication: Cataplexy
     Dosage: DOSE ADJUSTMENT
     Route: 048
     Dates: start: 201103, end: 202108
  3. XYREM [Suspect]
     Active Substance: SODIUM OXYBATE
     Indication: Somnolence
     Dosage: 4.5G BID AT BEDTIME
     Route: 048
     Dates: start: 202109
  4. MIMVEY [Concomitant]
     Active Substance: ESTRADIOL\NORETHINDRONE ACETATE
     Dosage: 1-0.5 MG
     Dates: start: 20150928
  5. TEMAZEPAM [Concomitant]
     Active Substance: TEMAZEPAM
     Dosage: UNK
     Dates: start: 20150928
  6. VALTREX [Concomitant]
     Active Substance: VALACYCLOVIR HYDROCHLORIDE
     Dosage: UNK, QD (0010)
     Dates: start: 20160801
  7. ATORVASTATIN [Concomitant]
     Active Substance: ATORVASTATIN
     Dosage: UNK
     Dates: start: 20170701
  8. PINDOLOL [Concomitant]
     Active Substance: PINDOLOL
     Dosage: UNK
     Dates: start: 20180501
  9. FLONASE SENSIMIST ALLERGY RELIEF [Concomitant]
     Active Substance: FLUTICASONE FUROATE
     Dosage: UNK
     Dates: start: 20211203
  10. METOPROLOL SUCCINATE [Concomitant]
     Active Substance: METOPROLOL SUCCINATE
     Dosage: UNK
     Dates: start: 20200512
  11. PIROXICAM [Concomitant]
     Active Substance: PIROXICAM
     Dosage: UNK
     Dates: start: 20220124

REACTIONS (4)
  - Post cardiac arrest syndrome [Unknown]
  - Impaired gastric emptying [Unknown]
  - Hypertension [Unknown]
  - Product administration interrupted [Unknown]
